FAERS Safety Report 5006795-0 (Version None)
Quarter: 2006Q2

REPORT INFORMATION
  Report Type: 
  Country: None (occurrence: None)
  Receive Date: 20060516
  Receipt Date: 20060503
  Transmission Date: 20061013
  Serious: Yes (Death, Hospitalization)
  Sender: FDA-Public Use
  Company Number: 2006047434

PATIENT
  Age: 57 Year
  Sex: Male
  Weight: 82 kg

DRUGS (7)
  1. STUENT         SU-011,248 (SUNITINIB MALATE) [Suspect]
     Indication: RENAL CELL CARCINOMA STAGE UNSPECIFIED
     Dosage: 50 MG (50 MG, CYCLIC - INTERVAL:  EVERY DAY), ORAL
     Route: 048
     Dates: start: 20060123, end: 20060219
  2. STUENT         SU-011,248 (SUNITINIB MALATE) [Suspect]
     Indication: RENAL CELL CARCINOMA STAGE UNSPECIFIED
     Dosage: 50 MG (50 MG, CYCLIC - INTERVAL:  EVERY DAY), ORAL
     Route: 048
     Dates: start: 20060306, end: 20060403
  3. MORPHINE SULFATE [Concomitant]
  4. ORAMORPH SR [Concomitant]
  5. LACTULOSE [Concomitant]
  6. OMEPRAZOLE [Concomitant]
  7. CO-FLUAMPICIL              (AMPICILLIN, FLUCLOXACILLIN) [Concomitant]

REACTIONS (5)
  - FUNGAL INFECTION [None]
  - MALIGNANT NEOPLASM PROGRESSION [None]
  - METASTATIC RENAL CELL CARCINOMA [None]
  - RENAL IMPAIRMENT [None]
  - SKIN ULCER [None]
